FAERS Safety Report 4413981-7 (Version None)
Quarter: 2004Q3

REPORT INFORMATION
  Report Type: 
  Country: None (occurrence: None)
  Receive Date: 20040728
  Receipt Date: 20040714
  Transmission Date: 20050211
  Serious: Yes (Hospitalization)
  Sender: FDA-Public Use
  Company Number: S04-GER-03184-01

PATIENT
  Sex: Female

DRUGS (2)
  1. CITALOPRAM HYDROBROMIDE [Suspect]
     Dosage: 60 MG QD PO
     Route: 048
  2. ZYPREXA [Suspect]
     Dosage: 10 MG QD PO
     Route: 048

REACTIONS (3)
  - OVERDOSE [None]
  - STATUS EPILEPTICUS [None]
  - SUICIDE ATTEMPT [None]
